FAERS Safety Report 20759739 (Version 1)
Quarter: 2022Q2

REPORT INFORMATION
  Report Type: Spontaneous
  Country: US (occurrence: US)
  Receive Date: 20220427
  Receipt Date: 20220427
  Transmission Date: 20220721
  Serious: No
  Sender: FDA-Public Use
  Company Number: US-PFIZER INC-202101441191

PATIENT
  Age: 70 Year
  Sex: Female
  Weight: 46.27 kg

DRUGS (1)
  1. SILDENAFIL CITRATE [Suspect]
     Active Substance: SILDENAFIL CITRATE
     Dosage: UNK

REACTIONS (8)
  - Fatigue [Unknown]
  - Asthenia [Unknown]
  - Nasal congestion [Unknown]
  - Headache [Unknown]
  - Depression [Unknown]
  - Apathy [Unknown]
  - Off label use [Unknown]
  - Product use issue [Unknown]
